FAERS Safety Report 11584314 (Version 1)
Quarter: 2015Q4

REPORT INFORMATION
  Report Type: Spontaneous
  Country: US (occurrence: US)
  Receive Date: 20151001
  Receipt Date: 20151001
  Transmission Date: 20160304
  Serious: Yes (Other)
  Sender: FDA-Public Use
  Company Number: US-JNJFOC-20150917042

PATIENT
  Age: 31 Year
  Sex: Female
  Weight: 85.73 kg

DRUGS (2)
  1. VITAMINS NOS [Concomitant]
     Active Substance: VITAMINS
     Indication: ROUTINE HEALTH MAINTENANCE
     Route: 065
  2. LISTERINE TOTAL CARE ZERO FRESH MINT [Suspect]
     Active Substance: SODIUM FLUORIDE
     Indication: DENTAL DISORDER PROPHYLAXIS
     Dosage: FILLING THE CAP AND USING IT 5-6 TIMES A DAY.
     Route: 048

REACTIONS (3)
  - Inappropriate schedule of drug administration [Recovered/Resolved]
  - Toothache [Recovered/Resolved]
  - Tooth abscess [Recovered/Resolved]
